FAERS Safety Report 10557130 (Version 2)
Quarter: 2014Q4

REPORT INFORMATION
  Report Type: Spontaneous
  Country: FR (occurrence: FR)
  Receive Date: 20141031
  Receipt Date: 20141126
  Transmission Date: 20150529
  Serious: Yes (Death, Hospitalization, Other)
  Sender: FDA-Public Use
  Company Number: FR-OTSUKA-US-2014-13319

PATIENT

DRUGS (7)
  1. BUSULFEX [Suspect]
     Active Substance: BUSULFAN
     Indication: STEM CELL TRANSPLANT
     Dosage: 0.8 MG/KG, QID, ON DAYS -4 TO -3
     Route: 042
     Dates: start: 20140905, end: 20140906
  2. ARACYTINE [Suspect]
     Active Substance: CYTARABINE
     Indication: STEM CELL TRANSPLANT
     Dosage: 1 MG/M2, DAILY DOSE, ON DAYS -13 TO -9
     Route: 042
     Dates: start: 20140827, end: 20140831
  3. SANDIMMUNE [Concomitant]
     Active Substance: CYCLOSPORINE
     Indication: PRODUCT USED FOR UNKNOWN INDICATION
     Dosage: UNK
     Route: 065
  4. ZOVIRAX [Concomitant]
     Active Substance: ACYCLOVIR
     Indication: PRODUCT USED FOR UNKNOWN INDICATION
     Dosage: UNK
     Route: 065
  5. EVOLTRA [Suspect]
     Active Substance: CLOFARABINE
     Indication: STEM CELL TRANSPLANT
     Dosage: 30 MG/M2, DAILY DOSE, ON DAYS -13 TO -9
     Route: 042
     Dates: start: 20140827, end: 20140831
  6. ENDOXAN [Suspect]
     Active Substance: CYCLOPHOSPHAMIDE
     Indication: STEM CELL TRANSPLANT
     Dosage: 2.5 MG/KG, DAILY DOSE, ON DAY -5
     Route: 042
     Dates: start: 20140904, end: 20140904
  7. THYMOGLOBULINE [Suspect]
     Active Substance: LAPINE T-LYMPHOCYTE IMMUNE GLOBULIN
     Indication: STEM CELL TRANSPLANT
     Dosage: 2.5 MG/KG, DAILY DOSE, ON DAYS -3 AND -2
     Route: 065
     Dates: start: 20140906, end: 20140907

REACTIONS (11)
  - Pyrexia [Unknown]
  - Pneumonia klebsiella [Unknown]
  - Cholestasis [Unknown]
  - Hepatic enzyme increased [Unknown]
  - Hyperbilirubinaemia [Unknown]
  - Klebsiella sepsis [Fatal]
  - Multi-organ failure [Fatal]
  - Haemodynamic instability [Unknown]
  - Bone marrow failure [Unknown]
  - Swelling [Unknown]
  - Rash [Unknown]

NARRATIVE: CASE EVENT DATE: 20140910
